FAERS Safety Report 7039050-8 (Version None)
Quarter: 2010Q4

REPORT INFORMATION
  Report Type: 
  Country: None (occurrence: None)
  Receive Date: 20101012
  Receipt Date: 20101004
  Transmission Date: 20110411
  Serious: Yes (Hospitalization)
  Sender: FDA-Public Use
  Company Number: US-BAYER-201033439NA

PATIENT
  Age: 72 Year
  Sex: Male

DRUGS (2)
  1. ULTRAVIST 300 [Suspect]
     Indication: COMPUTERISED TOMOGRAM ABDOMEN
     Dosage: TOTAL DAILY DOSE: 125 ML  UNIT DOSE: 125 ML
     Route: 042
     Dates: start: 20100913, end: 20100913
  2. E-Z-CAT [Concomitant]
     Indication: COMPUTERISED TOMOGRAM ABDOMEN
     Route: 048
     Dates: start: 20100913, end: 20100913

REACTIONS (3)
  - ABDOMINAL PAIN [None]
  - CONVULSION [None]
  - DYSPNOEA [None]
